FAERS Safety Report 13682849 (Version 2)
Quarter: 2017Q2

REPORT INFORMATION
  Report Type: Spontaneous
  Country: US (occurrence: US)
  Receive Date: 20170623
  Receipt Date: 20170627
  Transmission Date: 20170830
  Serious: Yes (Hospitalization)
  Sender: FDA-Public Use
  Company Number: US-PFIZER INC-2017265909

PATIENT
  Age: 56 Year
  Sex: Male

DRUGS (1)
  1. GENTAMICIN SULFATE. [Suspect]
     Active Substance: GENTAMICIN SULFATE
     Indication: MENIERE^S DISEASE
     Dosage: 0.3 ML OF 30 MG/ML GENTAMICIN

REACTIONS (2)
  - Diplopia [Recovered/Resolved]
  - Strabismus [Recovered/Resolved]
